FAERS Safety Report 4805820-7 (Version None)
Quarter: 2005Q4

REPORT INFORMATION
  Report Type: 
  Country: None (occurrence: None)
  Receive Date: 20051019
  Receipt Date: 20051010
  Transmission Date: 20060501
  Serious: Yes (Other)
  Sender: FDA-Public Use
  Company Number: 2005-10-0504

PATIENT
  Age: 49 Year
  Sex: Male

DRUGS (7)
  1. PEG-INTRON [Suspect]
     Indication: HEPATITIS C
     Dosage: SUBCATENOUS
     Route: 058
     Dates: start: 20050715
  2. RIBAVIRIN [Suspect]
     Dosage: ORAL
     Route: 048
     Dates: start: 20050712
  3. KLONOPIN [Concomitant]
  4. PRILOSEC [Concomitant]
  5. WELLBUTRIN (BUPROPION) TABLETS [Concomitant]
  6. ASPIRIN CHEWABLE TABLETS [Concomitant]
  7. IBUPROFEN [Concomitant]

REACTIONS (2)
  - CARDIAC STRESS TEST ABNORMAL [None]
  - CHEST PAIN [None]
